FAERS Safety Report 17554395 (Version 1)
Quarter: 2020Q1

REPORT INFORMATION
  Report Type: Spontaneous
  Country: US (occurrence: US)
  Receive Date: 20200318
  Receipt Date: 20200318
  Transmission Date: 20200409
  Serious: No
  Sender: FDA-Public Use
  Company Number: US-LEADING PHARMA LLC-US-2020LEASPO00039

PATIENT
  Age: 49 Year
  Sex: Female
  Weight: 130 kg

DRUGS (4)
  1. FOLIC ACID TABLETS USP [Suspect]
     Active Substance: FOLIC ACID
     Dates: start: 20200311, end: 20200312
  2. UPTRAVI [Concomitant]
     Active Substance: SELEXIPAG
  3. VITAMIN C [Concomitant]
     Active Substance: ASCORBIC ACID
  4. SILDENAFIL. [Concomitant]
     Active Substance: SILDENAFIL

REACTIONS (2)
  - Rash [Recovered/Resolved]
  - Pruritus [Recovered/Resolved]

NARRATIVE: CASE EVENT DATE: 20200311
